FAERS Safety Report 4558491-1 (Version None)
Quarter: 2005Q1

REPORT INFORMATION
  Report Type: 
  Country: None (occurrence: None)
  Receive Date: 20050121
  Receipt Date: 20041105
  Transmission Date: 20050727
  Serious: Yes (Death, Life-Threatening, Hospitalization, Disabling)
  Sender: FDA-Public Use
  Company Number: US-MERCK-0411USA00907

PATIENT
  Age: 78 Year
  Sex: Male

DRUGS (2)
  1. VIOXX [Suspect]
     Indication: OSTEOARTHRITIS
     Route: 048
     Dates: start: 20000101
  2. VIOXX [Suspect]
     Route: 048
     Dates: start: 20030501

REACTIONS (32)
  - ACUTE MYOCARDIAL INFARCTION [None]
  - ANAEMIA [None]
  - AORTIC ANEURYSM [None]
  - ASTHENIA [None]
  - BACK PAIN [None]
  - BENIGN PROSTATIC HYPERPLASIA [None]
  - BRAIN NATRIURETIC PEPTIDE INCREASED [None]
  - CARDIAC ARREST [None]
  - CARDIAC DISORDER [None]
  - CARDIAC FAILURE CONGESTIVE [None]
  - CARDIOGENIC SHOCK [None]
  - CHEST DISCOMFORT [None]
  - CORONARY ARTERY DISEASE [None]
  - DELIRIUM [None]
  - DEPRESSION POSTOPERATIVE [None]
  - GASTROOESOPHAGEAL REFLUX DISEASE [None]
  - GENERAL PHYSICAL HEALTH DETERIORATION [None]
  - HYPERTENSION [None]
  - HYPOTENSION [None]
  - HYPOXIA [None]
  - MYOCARDIAL INFARCTION [None]
  - NON-CARDIAC CHEST PAIN [None]
  - OSTEOARTHRITIS [None]
  - POST PROCEDURAL COMPLICATION [None]
  - POST PROCEDURAL HAEMATOMA [None]
  - POST PROCEDURAL HAEMORRHAGE [None]
  - PROSTATE CANCER [None]
  - PRURITUS [None]
  - RENAL FAILURE ACUTE [None]
  - URINARY INCONTINENCE [None]
  - VASCULAR BYPASS GRAFT [None]
  - VENTRICULAR FIBRILLATION [None]
